FAERS Safety Report 5449521-3 (Version None)
Quarter: 2007Q3

REPORT INFORMATION
  Report Type: 
  Country: None (occurrence: None)
  Receive Date: 20070907
  Receipt Date: 20070828
  Transmission Date: 20080115
  Serious: Yes (Hospitalization, Disabling)
  Sender: FDA-Public Use
  Company Number: 2007AL003572

PATIENT
  Sex: Female

DRUGS (3)
  1. PHENTERMINE HYDROCHLORIDE [Suspect]
     Indication: WEIGHT CONTROL
     Dates: start: 19950101
  2. PONDIMIN [Concomitant]
  3. REDUX [Concomitant]

REACTIONS (4)
  - ANHEDONIA [None]
  - ANXIETY [None]
  - DRUG INTERACTION [None]
  - PULMONARY HYPERTENSION [None]
